FAERS Safety Report 12187365 (Version 2)
Quarter: 2016Q1

REPORT INFORMATION
  Report Type: Spontaneous
  Country: CN (occurrence: CN)
  Receive Date: 20160317
  Receipt Date: 20160323
  Transmission Date: 20160526
  Serious: Yes (Hospitalization)
  Sender: FDA-Public Use
  Company Number: CN-ASTRAZENECA-2016SE27352

PATIENT
  Age: 64 Year
  Sex: Male

DRUGS (8)
  1. POTASSIUM CHLORIDE. [Concomitant]
     Active Substance: POTASSIUM CHLORIDE
  2. KETOSTERIL [Concomitant]
     Active Substance: AMINO ACIDS
  3. DIGOXIN. [Concomitant]
     Active Substance: DIGOXIN
  4. MIYA [Concomitant]
  5. WEIFUCHUN [Concomitant]
     Dates: start: 201603
  6. NEXIUM [Suspect]
     Active Substance: ESOMEPRAZOLE MAGNESIUM
     Indication: GASTROOESOPHAGEAL REFLUX DISEASE
     Route: 048
     Dates: start: 201601
  7. NEXIUM [Suspect]
     Active Substance: ESOMEPRAZOLE MAGNESIUM
     Indication: GASTROOESOPHAGEAL REFLUX DISEASE
     Route: 048
     Dates: end: 201603
  8. FUROSEMIDE. [Concomitant]
     Active Substance: FUROSEMIDE

REACTIONS (7)
  - Diarrhoea [Recovered/Resolved]
  - Arthralgia [Recovering/Resolving]
  - Hyperhidrosis [Unknown]
  - Tachycardia [Recovered/Resolved]
  - Pneumonia [Unknown]
  - Sleep disorder due to general medical condition, insomnia type [Recovering/Resolving]
  - Cardiac disorder [Recovered/Resolved]

NARRATIVE: CASE EVENT DATE: 2016
